FAERS Safety Report 17896708 (Version 4)
Quarter: 2020Q3

REPORT INFORMATION
  Report Type: Spontaneous
  Country: IT (occurrence: IT)
  Receive Date: 20200615
  Receipt Date: 20200916
  Transmission Date: 20201103
  Serious: Yes (Death, Hospitalization, Other)
  Sender: FDA-Public Use
  Company Number: IT-GILEAD-2020-0468859

PATIENT
  Age: 59 Year
  Sex: Male

DRUGS (37)
  1. DEPALGOS [Concomitant]
     Active Substance: ACETAMINOPHEN\OXYCODONE HYDROCHLORIDE
  2. CARDICOR [Concomitant]
     Active Substance: BISOPROLOL
  3. ANTORAL GOLA [Concomitant]
  4. CITOFOLIN [Concomitant]
  5. FUROSEMIDE. [Concomitant]
     Active Substance: FUROSEMIDE
  6. PARACETAMOL [Concomitant]
     Active Substance: ACETAMINOPHEN
  7. FLUDARABINE [Concomitant]
     Active Substance: FLUDARABINE PHOSPHATE
     Dosage: 50 MG
     Route: 042
     Dates: start: 20200430, end: 20200430
  8. ENDOXAN [CYCLOPHOSPHAMIDE] [Concomitant]
     Active Substance: CYCLOPHOSPHAMIDE
     Dosage: 900 MG
     Route: 042
     Dates: start: 20200501, end: 20200501
  9. CONTRAMAL [Concomitant]
     Active Substance: TRAMADOL HYDROCHLORIDE
  10. BECOZYM [VITAMIN B NOS] [Concomitant]
  11. CERNEVIT [Concomitant]
     Active Substance: VITAMINS
  12. UROMITEXAN [Concomitant]
     Active Substance: MESNA
     Dosage: 270 MG
     Dates: start: 20200501, end: 20200501
  13. ALLOPURINOL. [Concomitant]
     Active Substance: ALLOPURINOL
  14. DIFLUCAN [Concomitant]
     Active Substance: FLUCONAZOLE
  15. POTASSIUM CHLORIDE. [Concomitant]
     Active Substance: POTASSIUM CHLORIDE
     Dosage: UNK
  16. ACICLIN [Concomitant]
     Active Substance: ACYCLOVIR
     Dosage: UNK
  17. GADRAL [Concomitant]
     Active Substance: MAGALDRATE
  18. KONAKION [Concomitant]
     Active Substance: PHYTONADIONE
  19. UROMITEXAN [Concomitant]
     Active Substance: MESNA
     Dosage: 270 MG
     Dates: start: 20200430
  20. UROMITEXAN [Concomitant]
     Active Substance: MESNA
     Dosage: 270 MG
     Dates: start: 20200502, end: 20200502
  21. KEPPRA [Concomitant]
     Active Substance: LEVETIRACETAM
     Indication: PROPHYLAXIS
  22. CYCLOVIRAN [ACICLOVIR] [Concomitant]
  23. TRAMADOL. [Concomitant]
     Active Substance: TRAMADOL
  24. FLUDARABINE [Concomitant]
     Active Substance: FLUDARABINE PHOSPHATE
     Dosage: 60 MG
     Route: 042
     Dates: start: 20200501, end: 20200501
  25. FLUDARABINE [Concomitant]
     Active Substance: FLUDARABINE PHOSPHATE
     Dosage: 50 MG
     Route: 042
     Dates: start: 20200502, end: 20200502
  26. ENDOXAN [CYCLOPHOSPHAMIDE] [Concomitant]
     Active Substance: CYCLOPHOSPHAMIDE
     Dosage: 900 MG
     Route: 042
     Dates: start: 20200502, end: 20200502
  27. RAMIPRIL. [Concomitant]
     Active Substance: RAMIPRIL
  28. ONDANSETRON [Concomitant]
     Active Substance: ONDANSETRON
  29. GLUCOSIO [Concomitant]
     Active Substance: DEXTROSE
  30. MYCOSTATIN [Concomitant]
     Active Substance: NYSTATIN
  31. TACHIPIRINA [Concomitant]
     Active Substance: ACETAMINOPHEN
  32. LEVOFLOXACINA [Concomitant]
     Active Substance: LEVOFLOXACIN
  33. PIPERACILLIN AND TAZOBACTAM [Concomitant]
     Active Substance: PIPERACILLIN SODIUM\TAZOBACTAM SODIUM
  34. YESCARTA [Suspect]
     Active Substance: AXICABTAGENE CILOLEUCEL
     Indication: NON-HODGKIN^S LYMPHOMA
     Dosage: UNK
     Route: 042
     Dates: start: 20200505, end: 20200505
  35. ENDOXAN [CYCLOPHOSPHAMIDE] [Concomitant]
     Active Substance: CYCLOPHOSPHAMIDE
     Dosage: 900 MG
     Route: 042
     Dates: start: 20200430, end: 20200430
  36. SODIUM CHLORIDE 0.9% [Concomitant]
     Active Substance: SODIUM CHLORIDE
     Dosage: UNK
  37. LYRICA [Concomitant]
     Active Substance: PREGABALIN

REACTIONS (5)
  - Confusional state [Recovered/Resolved]
  - Aphasia [Recovered/Resolved]
  - Non-Hodgkin^s lymphoma [Fatal]
  - Cytopenia [Unknown]
  - Cytokine release syndrome [Recovered/Resolved]

NARRATIVE: CASE EVENT DATE: 20200510
